FAERS Safety Report 15243495 (Version 2)
Quarter: 2018Q3

REPORT INFORMATION
  Report Type: Other
  Country: US (occurrence: US)
  Receive Date: 20180806
  Receipt Date: 20180810
  Transmission Date: 20181010
  Serious: Yes (Other)
  Sender: FDA-Public Use
  Company Number: US-MERZ NORTH AMERICA, INC.-18MRZ-00378

PATIENT
  Sex: Female

DRUGS (1)
  1. ASCLERA [Suspect]
     Active Substance: POLIDOCANOL
     Indication: VARICOSE VEIN
     Dosage: 2CC FOAMED WITH 6CC OF ROOM AIR.
     Route: 042
     Dates: start: 20180425, end: 20180425

REACTIONS (2)
  - Pain in extremity [Unknown]
  - Deep vein thrombosis [Recovering/Resolving]
